FAERS Safety Report 9060150 (Version 6)
Quarter: 2014Q2

REPORT INFORMATION
  Report Type: Spontaneous
  Country: US (occurrence: US)
  Receive Date: 20130212
  Receipt Date: 20140430
  Transmission Date: 20141212
  Serious: Yes (Death, Hospitalization)
  Sender: FDA-Public Use
  Company Number: US-JNJFOC-20130204830

PATIENT
  Sex: Female
  Weight: 52.62 kg

DRUGS (10)
  1. EXTRA STRENGTH TYLENOL [Suspect]
     Route: 048
  2. EXTRA STRENGTH TYLENOL [Suspect]
     Indication: THERAPEUTIC PRODUCT INEFFECTIVE
     Dosage: 2 EVERY 4-6 HOURS
     Route: 048
     Dates: start: 201202
  3. TYLENOL WITH CODEINE [Suspect]
     Indication: ABDOMINAL PAIN
     Route: 048
     Dates: start: 201202
  4. CLONIDINE [Concomitant]
     Indication: BLOOD PRESSURE
     Route: 065
     Dates: start: 2000, end: 2012
  5. RANITIDINE [Concomitant]
     Indication: PRODUCT USED FOR UNKNOWN INDICATION
     Route: 065
     Dates: start: 201201
  6. DOXYCYCLINE [Concomitant]
     Indication: PRODUCT USED FOR UNKNOWN INDICATION
     Route: 065
     Dates: start: 201202
  7. ZOFRAN [Concomitant]
     Indication: PRODUCT USED FOR UNKNOWN INDICATION
     Route: 065
     Dates: start: 201202
  8. KEFLEX [Concomitant]
     Indication: PRODUCT USED FOR UNKNOWN INDICATION
     Route: 065
     Dates: start: 201202
  9. NICOTINE [Concomitant]
     Indication: PRODUCT USED FOR UNKNOWN INDICATION
     Route: 065
  10. ZANTAC [Concomitant]
     Indication: PRODUCT USED FOR UNKNOWN INDICATION
     Route: 065

REACTIONS (6)
  - Acute hepatic failure [Fatal]
  - Toxicity to various agents [Fatal]
  - Metabolic acidosis [Not Recovered/Not Resolved]
  - Anaemia [Not Recovered/Not Resolved]
  - Renal failure acute [Not Recovered/Not Resolved]
  - Haematemesis [Not Recovered/Not Resolved]
